FAERS Safety Report 9690822 (Version 1)
Quarter: 2013Q4

REPORT INFORMATION
  Report Type: Spontaneous
  Country: US (occurrence: None)
  Receive Date: 20131114
  Receipt Date: 20131114
  Transmission Date: 20140711
  Serious: Yes (Hospitalization)
  Sender: FDA-Public Use
  Company Number: None

PATIENT
  Age: 61 Year
  Sex: Female

DRUGS (11)
  1. RANIBIZUMAB [Suspect]
     Indication: DIABETIC RETINAL OEDEMA
     Dosage: 93 MINS INTRAUTICAL
     Dates: start: 20130404
  2. RANIBIZUMAB [Suspect]
     Indication: DIABETIC RETINAL OEDEMA
     Dosage: INTRAVITICAL
     Dates: start: 20130418
  3. WARFARIN [Concomitant]
  4. SIMVASTATIN [Concomitant]
  5. ATENOLOL [Concomitant]
  6. CITALOPRAM [Concomitant]
  7. LEVIMIR [Concomitant]
  8. HUMULIL [Concomitant]
  9. DIOVAN [Concomitant]
  10. METFORMIN [Concomitant]
  11. LYRICA [Concomitant]

REACTIONS (2)
  - Vomiting [None]
  - Dehydration [None]
